FAERS Safety Report 9234759 (Version 1)
Quarter: 2013Q2

REPORT INFORMATION
  Report Type: Report from Study
  Country: IT (occurrence: IT)
  Receive Date: 20130416
  Receipt Date: 20130416
  Transmission Date: 20140414
  Serious: Yes (Other)
  Sender: FDA-Public Use
  Company Number: IT-BAXTER-2013BAX014497

PATIENT
  Sex: 0

DRUGS (4)
  1. ENDOXAN BAXTER [Suspect]
     Indication: PLASMA CELL MYELOMA
     Dosage: DAYS 1, 8, 15
     Route: 048
  2. DEXAMETHASONE [Suspect]
     Indication: PLASMA CELL MYELOMA
     Dosage: DAYS 1, 8, 15, 22
     Route: 048
  3. CARFILZOMIB [Suspect]
     Indication: PLASMA CELL MYELOMA
     Dosage: DAYS 1, 2
     Route: 042
  4. CARFILZOMIB [Suspect]
     Dosage: DAYS 1, 2, 8, 9, 15, 16
     Route: 042

REACTIONS (2)
  - Pneumonia [Unknown]
  - Bronchitis [Unknown]
